FAERS Safety Report 23717549 (Version 1)
Quarter: 2024Q2

REPORT INFORMATION
  Report Type: Spontaneous
  Country: GB (occurrence: GB)
  Receive Date: 20240408
  Receipt Date: 20240408
  Transmission Date: 20240715
  Serious: Yes (Disabling, Other)
  Sender: FDA-Public Use
  Company Number: None

PATIENT
  Age: 38 Year
  Sex: Male
  Weight: 63 kg

DRUGS (1)
  1. CIPROFLOXACIN [Suspect]
     Active Substance: CIPROFLOXACIN
     Indication: Epididymitis
     Dosage: 500 MG, BID
     Route: 048
     Dates: start: 20240228, end: 20240318

REACTIONS (9)
  - Medication error [Unknown]
  - Tendonitis [Not Recovered/Not Resolved]
  - Tendon pain [Not Recovered/Not Resolved]
  - Muscular weakness [Not Recovered/Not Resolved]
  - Tinnitus [Not Recovered/Not Resolved]
  - Arthralgia [Not Recovered/Not Resolved]
  - Joint dislocation [Not Recovered/Not Resolved]
  - Pain in extremity [None]
  - Gait disturbance [None]

NARRATIVE: CASE EVENT DATE: 20240301
